FAERS Safety Report 16576411 (Version 1)
Quarter: 2019Q3

REPORT INFORMATION
  Report Type: Spontaneous
  Country: US (occurrence: US)
  Receive Date: 20190715
  Receipt Date: 20190715
  Transmission Date: 20191004
  Serious: Yes (Other)
  Sender: FDA-Public Use
  Company Number: None

PATIENT
  Age: 40 Year
  Sex: Male
  Weight: 79.38 kg

DRUGS (1)
  1. SUBLOCADE [Suspect]
     Active Substance: BUPRENORPHINE
     Indication: DRUG DEPENDENCE
     Dosage: GUIVEN INTO/UNDER SKIN
     Dates: start: 20190701

REACTIONS (6)
  - Wrong technique in product usage process [None]
  - Drug ineffective [None]
  - Injection site discolouration [None]
  - Injection site induration [None]
  - Drug withdrawal syndrome [None]
  - Injection site pain [None]

NARRATIVE: CASE EVENT DATE: 20190701
